FAERS Safety Report 8283615-2 (Version None)
Quarter: 2012Q2

REPORT INFORMATION
  Report Type: 
  Country: None (occurrence: None)
  Receive Date: 20120413
  Receipt Date: 20120404
  Transmission Date: 20120825
  Serious: Yes (Hospitalization)
  Sender: FDA-Public Use
  Company Number: JP-NAPPMUNDI-MAG-2012-0002121

PATIENT
  Age: 86 Year
  Sex: Female

DRUGS (16)
  1. CLONAZEPAM [Concomitant]
     Dosage: 1 MG, DAILY
     Route: 048
  2. PROMAC                             /00024401/ [Concomitant]
     Dosage: 150 MG, DAILY
     Route: 048
  3. DOPS [Concomitant]
     Dosage: 200 MG, DAILY
     Route: 048
  4. VASOLAN                            /00014302/ [Concomitant]
     Dosage: 2 DF, DAILY
     Route: 048
  5. AMEZINIUM METILSULFATE [Concomitant]
     Dosage: 1 DF, DAILY
     Route: 048
  6. BUPRENORPHINE [Suspect]
     Dosage: 10 MCG, Q1H
     Route: 062
     Dates: start: 20120320, end: 20120324
  7. NABOAL                             /00372302/ [Concomitant]
     Dosage: 2 DF, DAILY
     Route: 048
  8. BUPRENORPHINE [Suspect]
     Indication: PAIN
     Dosage: 5 MCG, Q1H
     Route: 062
     Dates: start: 20120306, end: 20120319
  9. DOPS [Concomitant]
     Dosage: 100 MG, DAILY
     Route: 048
  10. SYMBICORT [Concomitant]
     Route: 061
  11. LANSOPRAZOLE [Concomitant]
     Dosage: 30 MG, DAILY
     Route: 048
  12. MIYA BM [Concomitant]
     Dosage: 6 DF, DAILY
  13. SLO-BID [Concomitant]
     Dosage: 100 MG, DAILY
     Route: 048
  14. MIDODRINE HYDROCHLORIDE [Concomitant]
     Dosage: 4 MG, DAILY
     Route: 048
  15. DOMPERIDONE [Concomitant]
     Dosage: 20 MG, DAILY
     Route: 048
  16. VASOLAN                            /00014302/ [Concomitant]
     Dosage: 3 DF, DAILY
     Route: 048

REACTIONS (1)
  - CHOLECYSTITIS [None]
